FAERS Safety Report 10574383 (Version 2)
Quarter: 2014Q4

REPORT INFORMATION
  Report Type: Spontaneous
  Country: US (occurrence: US)
  Receive Date: 20141110
  Receipt Date: 20141212
  Transmission Date: 20150529
  Serious: No
  Sender: FDA-Public Use
  Company Number: US-BAYER-2014-156515

PATIENT
  Age: 96 Year
  Sex: Female

DRUGS (3)
  1. ADALAT CC [Suspect]
     Active Substance: NIFEDIPINE
     Dosage: UNK
     Route: 048
  2. CIPRO [Suspect]
     Active Substance: CIPROFLOXACIN HYDROCHLORIDE
     Dosage: UNK
     Route: 048
  3. CLARITIN [Suspect]
     Active Substance: LORATADINE
     Dosage: UNK

REACTIONS (5)
  - Rash [None]
  - Drug hypersensitivity [None]
  - Anxiety [None]
  - Swelling face [None]
  - Pruritus [None]
